FAERS Safety Report 8789619 (Version 1)
Quarter: 2012Q4

REPORT INFORMATION
  Report Type: Spontaneous
  Country: US (occurrence: None)
  Receive Date: 20120910
  Receipt Date: 20120910
  Transmission Date: 20130627
  Serious: Yes (Congenital Anomaly)
  Sender: FDA-Public Use
  Company Number: None

PATIENT
  Age: 32 Year
  Sex: Female
  Weight: 76.2 kg

DRUGS (4)
  1. PREDNISONE [Suspect]
     Indication: AUTIOIMMUNE INDUCED RASH
     Dosage: 20 mg tabs 3 per day x 3 days, then 2/day x 3 days, then 1/day x 3 days oral
     Route: 048
     Dates: start: 20120731, end: 20120812
  2. PREDNISONE [Suspect]
     Indication: AUTIOIMMUNE INDUCED RASH
     Route: 048
  3. PREDNISONE [Suspect]
     Indication: AUTIOIMMUNE INDUCED RASH
     Route: 048
  4. ADDERALL [Concomitant]

REACTIONS (3)
  - Insomnia [None]
  - Arthralgia [None]
  - Discomfort [None]
